FAERS Safety Report 26170294 (Version 1)
Quarter: 2025Q4

REPORT INFORMATION
  Report Type: Spontaneous
  Country: US (occurrence: US)
  Receive Date: 20251217
  Receipt Date: 20251217
  Transmission Date: 20260117
  Serious: No
  Sender: ARDELYX
  Company Number: US-ARDELYX-2025ARDX009044

PATIENT
  Age: 29 Year
  Sex: Male

DRUGS (1)
  1. XPHOZAH [Suspect]
     Active Substance: TENAPANOR HYDROCHLORIDE
     Indication: Chronic kidney disease
     Dosage: 20 MG, BID
     Route: 048

REACTIONS (3)
  - Condition aggravated [Unknown]
  - Product use issue [Unknown]
  - Therapy interrupted [Unknown]
